FAERS Safety Report 6668007-1 (Version None)
Quarter: 2010Q2

REPORT INFORMATION
  Report Type: 
  Country: None (occurrence: None)
  Receive Date: 20100405
  Receipt Date: 20100323
  Transmission Date: 20101027
  Serious: Yes (Other)
  Sender: FDA-Public Use
  Company Number: US-ELI_LILLY_AND_COMPANY-US201002006318

PATIENT
  Sex: Female

DRUGS (11)
  1. FORTEO [Suspect]
     Indication: OSTEOPOROSIS
     Dosage: 20 UG, DAILY (1/D)
     Dates: start: 20091201, end: 20091201
  2. METOPROLOL SUCCINATE [Concomitant]
     Indication: BLOOD PRESSURE
  3. METHOTREXATE [Concomitant]
     Indication: RHEUMATOID ARTHRITIS
  4. HUMIRA [Concomitant]
     Indication: RHEUMATOID ARTHRITIS
  5. NEXIUM [Concomitant]
  6. FOLIC ACID [Concomitant]
  7. PHENERGAN [Concomitant]
     Indication: NAUSEA
  8. MUSCLE RELAXANTS [Concomitant]
     Indication: INTERVERTEBRAL DISC DEGENERATION
  9. ELAVIL [Concomitant]
  10. AMBIEN [Concomitant]
     Indication: SLEEP DISORDER
  11. CRESTOR [Concomitant]

REACTIONS (8)
  - ARTHRALGIA [None]
  - BLOOD PRESSURE SYSTOLIC INCREASED [None]
  - BONE PAIN [None]
  - BURNING SENSATION [None]
  - DISCOMFORT [None]
  - HYPOTENSION [None]
  - MALAISE [None]
  - TRANSIENT ISCHAEMIC ATTACK [None]
